FAERS Safety Report 8916026 (Version 1)
Quarter: 2012Q4

REPORT INFORMATION
  Report Type: 
  Country: GB (occurrence: GB)
  Receive Date: 20121119
  Receipt Date: 20121119
  Transmission Date: 20130627
  Serious: Yes (Other)
  Sender: FDA-Public Use
  Company Number: PHFR2012GB005944

PATIENT
  Sex: Female

DRUGS (1)
  1. TEGRETOL [Suspect]
     Indication: EPILEPSY
     Dosage: 500 mg daily

REACTIONS (3)
  - Infected skin ulcer [Recovering/Resolving]
  - Depressed mood [Unknown]
  - Blood sodium decreased [Not Recovered/Not Resolved]
